FAERS Safety Report 5051280-3 (Version None)
Quarter: 2006Q3

REPORT INFORMATION
  Report Type: 
  Country: None (occurrence: None)
  Receive Date: 20060714
  Receipt Date: 20030115
  Transmission Date: 20061208
  Serious: Yes (Hospitalization)
  Sender: FDA-Public Use
  Company Number: CH-AVENTIS-200310133EU

PATIENT
  Age: 74 Year
  Sex: Male

DRUGS (7)
  1. LASIX [Suspect]
     Route: 048
     Dates: end: 20021116
  2. LASILACTON [Suspect]
     Route: 048
     Dates: end: 20021116
  3. VALSARTAN AND HYDROCHLOROTHIAZIDE [Suspect]
     Dosage: DOSE: 80 + 12.5
     Route: 048
     Dates: end: 20021116
  4. AMIODARONE HCL [Concomitant]
     Route: 048
  5. NITROGLYCERIN [Concomitant]
     Route: 062
  6. ASPIRIN [Concomitant]
     Route: 048
  7. LEVOTHYROXIN [Concomitant]
     Route: 048

REACTIONS (8)
  - DEHYDRATION [None]
  - HYPERKALAEMIA [None]
  - NAUSEA [None]
  - PRURITUS [None]
  - RENAL FAILURE ACUTE [None]
  - RENAL FAILURE CHRONIC [None]
  - SOMNOLENCE [None]
  - WEIGHT DECREASED [None]
